FAERS Safety Report 6286563-2 (Version None)
Quarter: 2009Q3

REPORT INFORMATION
  Report Type: 
  Country: None (occurrence: None)
  Receive Date: 20090728
  Receipt Date: 20090402
  Transmission Date: 20100115
  Serious: Yes (Life-Threatening, Hospitalization, Other)
  Sender: FDA-Public Use
  Company Number: PHHY2009SE08965

PATIENT
  Sex: Male

DRUGS (4)
  1. CERTICAN [Suspect]
     Indication: CONGENITAL CYSTIC KIDNEY DISEASE
     Dosage: 1 MG/DAY
     Route: 048
     Dates: start: 20050125, end: 20050923
  2. CERTICAN [Suspect]
     Indication: RENAL TRANSPLANT
  3. SANDIMMUNE [Concomitant]
     Dosage: 75 MG 1X2
     Dates: start: 20020909
  4. PREDNISOLONE [Concomitant]
     Dosage: 5 MG 1,5X1
     Dates: start: 20020909

REACTIONS (4)
  - BRONCHOPULMONARY ASPERGILLOSIS [None]
  - LUNG INFECTION [None]
  - PNEUMOTHORAX [None]
  - THORACIC CAVITY DRAINAGE [None]
